FAERS Safety Report 20662165 (Version 3)
Quarter: 2022Q2

REPORT INFORMATION
  Report Type: Report from Study
  Country: DE (occurrence: DE)
  Receive Date: 20220401
  Receipt Date: 20220502
  Transmission Date: 20220720
  Serious: Yes (Other)
  Sender: FDA-Public Use
  Company Number: DE-BIOGEN-2022BI01108815

PATIENT
  Age: 66 Year
  Sex: Female

DRUGS (2)
  1. TYSABRI [Suspect]
     Active Substance: NATALIZUMAB
     Indication: Multiple sclerosis
     Route: 058
     Dates: start: 20210929
  2. TYSABRI [Suspect]
     Active Substance: NATALIZUMAB
     Dosage: 150MG TWICE FOR EVERY 4 WEEKS
     Route: 058

REACTIONS (4)
  - Epilepsy [Recovered/Resolved]
  - Spinal fracture [Recovered/Resolved]
  - Prescribed underdose [Not Recovered/Not Resolved]
  - Infection [Unknown]

NARRATIVE: CASE EVENT DATE: 20210929
